FAERS Safety Report 9520010 (Version 1)
Quarter: 2013Q3

REPORT INFORMATION
  Report Type: Report from Study
  Country: JP (occurrence: JP)
  Receive Date: 20130912
  Receipt Date: 20130912
  Transmission Date: 20140515
  Serious: Yes (Other)
  Sender: FDA-Public Use
  Company Number: JP-009507513-1304JPN011814

PATIENT
  Age: 35 Year
  Sex: Female

DRUGS (1)
  1. FOLLITROPIN BETA [Suspect]
     Dosage: 75 IU, QD
     Route: 030
     Dates: start: 20080121, end: 20080123

REACTIONS (1)
  - Abortion [Recovered/Resolved]
